FAERS Safety Report 13726550 (Version 5)
Quarter: 2017Q3

REPORT INFORMATION
  Report Type: Spontaneous
  Country: JP (occurrence: JP)
  Receive Date: 20170707
  Receipt Date: 20170817
  Transmission Date: 20171127
  Serious: Yes (Life-Threatening, Hospitalization, Disabling, Other)
  Sender: FDA-Public Use
  Company Number: JP-BRACCO-011331

PATIENT
  Age: 65 Year
  Sex: Female

DRUGS (2)
  1. IOPAMIRON [Suspect]
     Active Substance: IOPAMIDOL
     Indication: COMPUTERISED TOMOGRAM CORONARY ARTERY
     Dosage: 45 ML, SINGLE
     Route: 040
     Dates: start: 20170623, end: 20170623
  2. PHENYTOIN. [Interacting]
     Active Substance: PHENYTOIN
     Indication: SEIZURE
     Route: 048

REACTIONS (8)
  - Drug interaction [Unknown]
  - Hyponatraemia [Recovered/Resolved]
  - Feeling abnormal [Unknown]
  - Rhabdomyolysis [Recovering/Resolving]
  - Altered state of consciousness [Unknown]
  - Muscular weakness [Unknown]
  - Contrast media reaction [None]
  - Epilepsy [Unknown]

NARRATIVE: CASE EVENT DATE: 20170623
